FAERS Safety Report 10102146 (Version 2)
Quarter: 2014Q2

REPORT INFORMATION
  Report Type: Spontaneous
  Country: US (occurrence: US)
  Receive Date: 20140424
  Receipt Date: 20140520
  Transmission Date: 20141212
  Serious: Yes (Hospitalization)
  Sender: FDA-Public Use
  Company Number: US-ASTRAZENECA-2014SE26853

PATIENT
  Age: 16126 Day
  Sex: Female
  Weight: 58.5 kg

DRUGS (17)
  1. BRILINTA [Suspect]
     Indication: SHORT-CHAIN ACYL-COENZYME A DEHYDROGENASE DEFICIENCY
     Route: 048
     Dates: start: 20140101, end: 20140411
  2. BRILINTA [Suspect]
     Indication: MYOCARDIAL INFARCTION
     Route: 048
     Dates: start: 20140101, end: 20140411
  3. LISINOPRIL [Suspect]
     Route: 048
     Dates: start: 20140109
  4. METOPROLOL TARTRATE [Suspect]
     Route: 048
     Dates: start: 20140109
  5. METOPROLOL TARTRATE [Suspect]
     Route: 048
  6. ASPIRIN [Concomitant]
     Route: 048
     Dates: start: 20100304
  7. HYDROCODONE-ACETAMINOPHEN [Concomitant]
     Indication: PAIN
     Dosage: 7.5-325 MG 1 TABLET BEDTIME
     Route: 048
     Dates: start: 20110930
  8. LORAZEPAM [Concomitant]
     Indication: INSOMNIA
     Dosage: 1TABLET AT BEDTIME AS NEEDED
     Route: 048
     Dates: start: 20131118
  9. METAXALONE [Concomitant]
     Route: 048
     Dates: start: 20130627
  10. MULTIPLE VITAMINS [Concomitant]
     Dates: start: 20090707
  11. PROGESTERONE [Concomitant]
     Route: 048
     Dates: start: 20100304
  12. VITAMIN D [Concomitant]
     Route: 048
     Dates: start: 20100304
  13. VIVELLE [Concomitant]
     Dosage: 0.0375 MG/24HR, 1 PATCH EXTERNALLY 2 TIMES WEEKLY
     Route: 062
     Dates: start: 20120202
  14. LIPITOR [Concomitant]
     Route: 048
     Dates: start: 20140109
  15. CIPROFLOXACIN HCL [Concomitant]
     Route: 048
     Dates: start: 20140331
  16. NITROSTAT [Concomitant]
     Indication: CHEST PAIN
     Dosage: DISSOLVE 1 TABLET UNDER THE TONGUE AS NEEDED
     Route: 060
     Dates: start: 20140109
  17. RESTASIS [Concomitant]
     Route: 047
     Dates: start: 20140113

REACTIONS (4)
  - Oesophageal spasm [Recovered/Resolved]
  - Chest pain [Recovered/Resolved]
  - Tachycardia [Recovered/Resolved]
  - Dyspnoea [Recovered/Resolved]
